FAERS Safety Report 8603553-2 (Version None)
Quarter: 2012Q3

REPORT INFORMATION
  Report Type: 
  Country: None (occurrence: None)
  Receive Date: 20120817
  Receipt Date: 20120808
  Transmission Date: 20120928
  Serious: Yes (Death)
  Sender: FDA-Public Use
  Company Number: US-CELGENEUS-163-20785-12072654

PATIENT
  Sex: Male

DRUGS (4)
  1. PREDNISONE TAB [Concomitant]
     Dosage: .4167 MILLIGRAM
     Route: 048
  2. PREDNISONE TAB [Concomitant]
     Dosage: .8333 MILLIGRAM
     Route: 048
     Dates: start: 20120606
  3. THALOMID [Suspect]
     Indication: MYELOFIBROSIS
     Dosage: 50 MILLIGRAM
     Route: 048
     Dates: start: 20120607, end: 20120704
  4. JAKAFI [Concomitant]
     Dosage: 30 MILLIGRAM
     Route: 048
     Dates: start: 20120503

REACTIONS (1)
  - RIGHT VENTRICULAR FAILURE [None]
